FAERS Safety Report 8293723-8 (Version None)
Quarter: 2012Q2

REPORT INFORMATION
  Report Type: 
  Country: None (occurrence: None)
  Receive Date: 20120412
  Receipt Date: 20120403
  Transmission Date: 20120825
  Serious: Yes (Other)
  Sender: FDA-Public Use
  Company Number: ACO_29953_2012

PATIENT
  Age: 51 Year
  Sex: Female

DRUGS (7)
  1. BUPROPION HCL [Suspect]
     Indication: DEPRESSION
     Dates: end: 20111101
  2. AMPYRA [Suspect]
     Indication: PRODUCT USED FOR UNKNOWN INDICATION
     Dates: end: 20111101
  3. DIAZEPAM [Suspect]
     Indication: MUSCLE SPASMS
     Dates: end: 20111101
  4. GABAPENTIN [Suspect]
     Indication: PRODUCT USED FOR UNKNOWN INDICATION
     Dosage: 6 DF, QD,
     Dates: end: 20111101
  5. ALL OTHER THERAPEUTIC PRODUCTS () [Suspect]
     Indication: PRODUCT USED FOR UNKNOWN INDICATION
     Dates: end: 20111101
  6. REBIF [Suspect]
     Indication: MULTIPLE SCLEROSIS
     Dates: start: 20110120
  7. SIMVASTATIN [Suspect]
     Indication: BLOOD CHOLESTEROL INCREASED
     Dates: end: 20111101

REACTIONS (7)
  - URINARY INCONTINENCE [None]
  - MOTOR DYSFUNCTION [None]
  - EYE MOVEMENT DISORDER [None]
  - FEELING ABNORMAL [None]
  - CONVULSION [None]
  - SUICIDAL IDEATION [None]
  - MENTAL DISORDER [None]
